FAERS Safety Report 21893621 (Version 1)
Quarter: 2023Q1

REPORT INFORMATION
  Report Type: Spontaneous
  Country: GB (occurrence: GB)
  Receive Date: 20230121
  Receipt Date: 20230121
  Transmission Date: 20230418
  Serious: Yes (Life-Threatening, Hospitalization, Other)
  Sender: FDA-Public Use
  Company Number: GB-AUROBINDO-AUR-APL-2023-001712

PATIENT
  Age: 59 Year
  Sex: Female
  Weight: 60 kg

DRUGS (1)
  1. MIRTAZAPINE [Suspect]
     Active Substance: MIRTAZAPINE
     Indication: Anxiety
     Dosage: UNK
     Route: 065
     Dates: start: 20221222

REACTIONS (1)
  - Suicide attempt [Recovering/Resolving]

NARRATIVE: CASE EVENT DATE: 20230106
